FAERS Safety Report 14081201 (Version 1)
Quarter: 2017Q4

REPORT INFORMATION
  Report Type: Spontaneous
  Country: US (occurrence: US)
  Receive Date: 20171013
  Receipt Date: 20171013
  Transmission Date: 20180321
  Serious: Yes (Hospitalization)
  Sender: FDA-Public Use
  Company Number: None

PATIENT
  Sex: Male

DRUGS (7)
  1. QUESTRAN [Concomitant]
     Active Substance: CHOLESTYRAMINE
  2. LIALDA [Concomitant]
     Active Substance: MESALAMINE
  3. ATORVASTATIN [Concomitant]
     Active Substance: ATORVASTATIN
  4. VITAMIN B12 [Concomitant]
     Active Substance: CYANOCOBALAMIN
  5. XIFAXAN [Suspect]
     Active Substance: RIFAXIMIN
     Indication: CROHN^S DISEASE
     Dosage: ?          QUANTITY:1 TABLET(S);?
     Route: 048
     Dates: start: 20150824, end: 20170202
  6. FINASTERIDE. [Concomitant]
     Active Substance: FINASTERIDE
  7. VITAMIN D3 [Concomitant]
     Active Substance: CHOLECALCIFEROL

REACTIONS (10)
  - Systemic inflammatory response syndrome [None]
  - Abdominal distension [None]
  - Diarrhoea [None]
  - Diarrhoea haemorrhagic [None]
  - Infection [None]
  - White blood cell count increased [None]
  - Dehydration [None]
  - Tachycardia [None]
  - Clostridium test positive [None]
  - Flatulence [None]

NARRATIVE: CASE EVENT DATE: 20170802
